FAERS Safety Report 7354444-9 (Version None)
Quarter: 2011Q1

REPORT INFORMATION
  Report Type: 
  Country: None (occurrence: None)
  Receive Date: 20110316
  Receipt Date: 20110228
  Transmission Date: 20110831
  Serious: Yes (Hospitalization, Other)
  Sender: FDA-Public Use
  Company Number: US-BAYER-201031761NA

PATIENT
  Sex: Female

DRUGS (16)
  1. YAZ [Suspect]
     Indication: PRODUCT USED FOR UNKNOWN INDICATION
     Route: 048
     Dates: start: 20050101, end: 20090315
  2. DICYCLOMINE [Concomitant]
     Indication: MUSCLE SPASMS
     Dosage: 20 MG, QID
     Route: 048
  3. BACTRIM [Concomitant]
  4. PROTONIX [Concomitant]
     Dosage: 40 MG, UNK
     Route: 048
     Dates: start: 20061109
  5. FLUCONAZOLE [Concomitant]
     Indication: FUNGAL INFECTION
     Dosage: 150 MG, QD
     Route: 048
  6. VICODIN [Concomitant]
     Dosage: 7.5 MG, UNK
     Route: 048
  7. YASMIN [Suspect]
     Indication: PRODUCT USED FOR UNKNOWN INDICATION
     Route: 048
     Dates: start: 20050101, end: 20090315
  8. CIPRO [Concomitant]
  9. AMBIEN [Concomitant]
     Dosage: 5 MG, UNK
     Route: 048
  10. METRONIDAZOLE [Concomitant]
     Dosage: 500 MG, BID
     Route: 048
  11. PROMETHAZINE [Concomitant]
     Dosage: 25 MG, QID
  12. SULFAMETHOXAZOLE AND TRIMETHOPRIM [Concomitant]
  13. ZEGERID [Concomitant]
  14. LOMOTIL [DIPHENOXYLATE HYDROCHLORIDE] [Concomitant]
  15. UNCODEABLE ^UNCLASSIFIABLE^ [Concomitant]
     Dosage: 12.5 MG, QD
     Route: 048
  16. LOMOTIL [DIPHENOXYLATE HYDROCHLORIDE] [Concomitant]
     Indication: MUSCLE SPASMS
     Dosage: UNK UNK, TID
     Route: 048

REACTIONS (4)
  - CHOLECYSTITIS CHRONIC [None]
  - GALLBLADDER CHOLESTEROLOSIS [None]
  - ABDOMINAL PAIN UPPER [None]
  - BILIARY DYSKINESIA [None]
